FAERS Safety Report 20225213 (Version 1)
Quarter: 2021Q4

REPORT INFORMATION
  Report Type: Report from Study
  Country: US (occurrence: US)
  Receive Date: 20211223
  Receipt Date: 20211223
  Transmission Date: 20220303
  Serious: Yes (Hospitalization)
  Sender: FDA-Public Use
  Company Number: US-JNJFOC-20211216723

PATIENT
  Age: 69 Year
  Sex: Female
  Weight: 61.4 kg

DRUGS (3)
  1. EPOPROSTENOL SODIUM [Suspect]
     Active Substance: EPOPROSTENOL SODIUM
     Indication: Pulmonary hypertension
     Dosage: 1.5 MG VIAL
     Route: 042
  2. AMBRISENTAN [Concomitant]
     Active Substance: AMBRISENTAN
  3. TADALAFIL [Concomitant]
     Active Substance: TADALAFIL

REACTIONS (3)
  - Device occlusion [Unknown]
  - Lung transplant [Unknown]
  - Product administration interrupted [Unknown]

NARRATIVE: CASE EVENT DATE: 20211115
